FAERS Safety Report 8487031-X (Version None)
Quarter: 2012Q3

REPORT INFORMATION
  Report Type: 
  Country: None (occurrence: None)
  Receive Date: 20120704
  Receipt Date: 20120629
  Transmission Date: 20120928
  Serious: Yes (Hospitalization, Other)
  Sender: FDA-Public Use
  Company Number: PHEH2007US12178

PATIENT
  Sex: Male
  Weight: 78.912 kg

DRUGS (92)
  1. GLIPIZIDE [Concomitant]
  2. CHEMOTHERAPEUTICS NOS [Concomitant]
  3. ATENOLOL [Concomitant]
  4. FLUTICASONE PROPIONATE [Concomitant]
  5. SULFAMETHOXAZOLE AND TRIMETHOPRIM [Concomitant]
  6. AMOXICILLIN [Concomitant]
  7. NAPROXEN [Concomitant]
  8. PREDNISONE [Concomitant]
  9. LEVAQUIN [Concomitant]
  10. ASTRAMORPH PF [Concomitant]
  11. DURAGESIC-100 [Concomitant]
     Dosage: 200 MG
     Dates: start: 20040519
  12. TENORMIN [Concomitant]
  13. LIDODERM [Concomitant]
  14. RADIATION THERAPY [Concomitant]
  15. LOVENOX [Concomitant]
  16. DEXAMETHASONE SODIUM PHOSPHATE [Concomitant]
     Dosage: 4 MG, Q6H
     Dates: start: 20040519
  17. ROXANOL [Concomitant]
  18. HYDROCODONE BITARTRATE + ACETAMINOPHEN [Concomitant]
  19. FENTANYL-100 [Concomitant]
  20. CATHFLO ACTIVASE [Concomitant]
  21. INSULIN HUMAN [Concomitant]
  22. LACTULOSE [Concomitant]
  23. REGLAN [Concomitant]
  24. DURAMORPH PF [Concomitant]
  25. SENOKOT                                 /UNK/ [Concomitant]
  26. METFORMIN HCL [Concomitant]
     Dosage: 1500 MG, BID
  27. AMBIEN [Concomitant]
  28. NPH INSULIN [Concomitant]
  29. FLUOXETINE [Concomitant]
  30. ENALAPRIL MALEATE [Concomitant]
  31. PRAVASTATIN [Concomitant]
  32. BACTRIM [Concomitant]
  33. METHADONE HCL [Concomitant]
  34. BENADRYL ^ACHE^ [Concomitant]
  35. ATIVAN [Concomitant]
  36. MAGNESIUM SULFATE [Concomitant]
  37. ZOMETA [Suspect]
     Indication: MULTIPLE MYELOMA
     Dosage: 4 MG
     Route: 042
     Dates: start: 20050315, end: 20070601
  38. CALCIUM CARBONATE W/VITAMIN D NOS [Concomitant]
  39. NEURONTIN [Concomitant]
  40. LIORESAL [Concomitant]
  41. ZANAFLEX [Concomitant]
  42. ACYCLOVIR [Concomitant]
  43. GABAPENTIN [Concomitant]
  44. ACETAMINOPHEN [Concomitant]
  45. RADIOTHERAPY [Concomitant]
     Dates: start: 20040419, end: 20040501
  46. PRILOSEC [Concomitant]
  47. ACTIQ [Concomitant]
  48. PIOGLITAZONE [Concomitant]
  49. LISINOPRIL [Concomitant]
  50. LOPERAMIDE [Concomitant]
  51. MAXIPIME [Concomitant]
  52. ALKERAN [Suspect]
  53. GLUCOPHAGE [Concomitant]
  54. VITAMIN TAB [Concomitant]
  55. MS CONTIN [Concomitant]
  56. ZESTRIL [Concomitant]
  57. DURAGESIC-100 [Concomitant]
     Dates: end: 20040519
  58. SENNA-MINT WAF [Concomitant]
  59. MULTI-VITAMINS [Concomitant]
  60. B-COMPLEX ^KRKA^ [Concomitant]
  61. DULCOLAX [Concomitant]
  62. MORPHINE SULFATE [Concomitant]
  63. RIMANTADINE HYDROCHLORIDE [Concomitant]
  64. INSULIN GLARGINE [Concomitant]
  65. MIRTAZAPINE [Concomitant]
  66. LOVAZA [Concomitant]
  67. PENICILLIN ^GRUNENTHAL^ [Concomitant]
  68. FLAGYL ^RHONE-POULENC RORER^ [Concomitant]
  69. MICRO-K [Concomitant]
  70. ZOFRAN [Concomitant]
  71. ALLOPURINOL [Concomitant]
  72. OXYCONTIN [Concomitant]
     Dosage: 20 MG, BID
     Dates: start: 20040409
  73. COLACE [Concomitant]
  74. ZANTAC [Concomitant]
  75. LANTUS [Concomitant]
  76. PROTONIX [Concomitant]
  77. GLYBURIDE [Concomitant]
  78. MORPHINE [Concomitant]
  79. THALIDOMIDE [Concomitant]
     Dosage: 200 MG
     Dates: start: 20040617
  80. ACTOS [Concomitant]
     Dosage: 15 MG, QD
  81. FLEXERIL [Concomitant]
  82. NOVOLOG [Concomitant]
  83. MAALOX                                  /NET/ [Concomitant]
  84. PERCOCET [Concomitant]
     Dosage: 1 DF, PRN
  85. MIRALAX [Concomitant]
  86. TIZANIDINE HYDROCHLORIDE [Concomitant]
  87. BACLOFEN [Concomitant]
  88. DEXAMETHASONE SODIUM PHOSPHATE [Concomitant]
     Dosage: 4 MG, Q6H
     Dates: end: 20040519
  89. PEPCID [Concomitant]
  90. DILAUDID [Concomitant]
  91. CHLORHEXIDINE GLUCONATE [Concomitant]
  92. DIFLUCAN [Concomitant]

REACTIONS (63)
  - PAIN [None]
  - DEFORMITY [None]
  - ANHEDONIA [None]
  - SCIATICA [None]
  - RENAL FAILURE [None]
  - SCROTAL IRRITATION [None]
  - SPINAL COLUMN STENOSIS [None]
  - EXOSTOSIS [None]
  - HERPES SIMPLEX SEROLOGY POSITIVE [None]
  - HEPATIC STEATOSIS [None]
  - HIATUS HERNIA [None]
  - OSTEONECROSIS OF JAW [None]
  - HYPOPHAGIA [None]
  - EMOTIONAL DISTRESS [None]
  - ANXIETY [None]
  - INJURY [None]
  - NEOPLASM MALIGNANT [None]
  - FAILURE TO THRIVE [None]
  - EPSTEIN-BARR VIRUS ANTIBODY POSITIVE [None]
  - TOXOPLASMA SEROLOGY POSITIVE [None]
  - THROMBOCYTOPENIA [None]
  - ARTHRALGIA [None]
  - MUCOSAL INFLAMMATION [None]
  - INTERVERTEBRAL DISC PROTRUSION [None]
  - LIGHT CHAIN ANALYSIS INCREASED [None]
  - COUGH [None]
  - FATIGUE [None]
  - BALANCE DISORDER [None]
  - PNEUMONIA [None]
  - RENAL OSTEODYSTROPHY [None]
  - RENAL MASS [None]
  - POST LAMINECTOMY SYNDROME [None]
  - ARTHROPATHY [None]
  - HAEMATOCHEZIA [None]
  - NEUTROPHIL COUNT DECREASED [None]
  - DEPRESSION [None]
  - OSTEOPOROSIS [None]
  - UROSEPSIS [None]
  - CARDIOMEGALY [None]
  - NEPHROGENIC ANAEMIA [None]
  - LIFE EXPECTANCY SHORTENED [None]
  - SPONDYLITIS [None]
  - INTERVERTEBRAL DISC DEGENERATION [None]
  - OSTEOARTHRITIS [None]
  - RENAL FAILURE CHRONIC [None]
  - DISCOMFORT [None]
  - PLEURAL FIBROSIS [None]
  - MYOFASCIAL PAIN SYNDROME [None]
  - WHITE BLOOD CELL COUNT DECREASED [None]
  - NEURALGIA [None]
  - GAIT DISTURBANCE [None]
  - DIVERTICULUM [None]
  - ARTERIOSCLEROSIS [None]
  - DYSURIA [None]
  - RASH PRURITIC [None]
  - INFECTION [None]
  - MYELITIS TRANSVERSE [None]
  - INGUINAL HERNIA [None]
  - PROSTATE CANCER [None]
  - DECREASED APPETITE [None]
  - GLAUCOMA [None]
  - BETA 2 MICROGLOBULIN INCREASED [None]
  - METABOLIC ACIDOSIS [None]
